FAERS Safety Report 11998688 (Version 1)
Quarter: 2016Q1

REPORT INFORMATION
  Report Type: Report from Study
  Country: US (occurrence: US)
  Receive Date: 20160203
  Receipt Date: 20160203
  Transmission Date: 20160526
  Serious: No
  Sender: FDA-Public Use
  Company Number: US-ABBVIE-15K-163-1418172-00

PATIENT
  Age: 63 Year
  Sex: Female
  Weight: 59.02 kg

DRUGS (6)
  1. METHOTREXATE [Concomitant]
     Active Substance: METHOTREXATE
     Indication: PRODUCT USED FOR UNKNOWN INDICATION
  2. PANTOPRAZOLE [Concomitant]
     Active Substance: PANTOPRAZOLE SODIUM
     Indication: PRODUCT USED FOR UNKNOWN INDICATION
  3. HUMIRA [Suspect]
     Active Substance: ADALIMUMAB
     Indication: RHEUMATOID ARTHRITIS
     Route: 065
     Dates: start: 201403
  4. VOLTAREN [Concomitant]
     Active Substance: DICLOFENAC SODIUM
  5. ATORVASTATIN [Concomitant]
     Active Substance: ATORVASTATIN
     Indication: BLOOD CHOLESTEROL INCREASED
  6. VOLTAREN [Concomitant]
     Active Substance: DICLOFENAC SODIUM
     Indication: PRODUCT USED FOR UNKNOWN INDICATION

REACTIONS (15)
  - Rheumatoid arthritis [Recovered/Resolved]
  - Incorrect dose administered [Unknown]
  - Injection site pruritus [Recovered/Resolved]
  - Rheumatoid arthritis [Unknown]
  - Incorrect dose administered [Unknown]
  - Device issue [Unknown]
  - Device issue [Unknown]
  - Joint stiffness [Not Recovered/Not Resolved]
  - Device issue [Unknown]
  - Insomnia [Not Recovered/Not Resolved]
  - Injection site urticaria [Recovered/Resolved]
  - Incorrect dose administered [Unknown]
  - Injection site pain [Recovered/Resolved]
  - Injection site swelling [Recovered/Resolved]
  - Injection site erythema [Recovered/Resolved]

NARRATIVE: CASE EVENT DATE: 201506
